FAERS Safety Report 4922097-2 (Version None)
Quarter: 2006Q1

REPORT INFORMATION
  Report Type: 
  Country: None (occurrence: None)
  Receive Date: 20060222
  Receipt Date: 20060222
  Transmission Date: 20060701
  Serious: Yes (Other)
  Sender: FDA-Public Use
  Company Number: None

PATIENT
  Sex: Male
  Weight: 90.7194 kg

DRUGS (1)
  1. PRILOSEC OTC [Suspect]
     Indication: GASTRIC PH DECREASED
     Dosage: ONE PILL ONCE EVERYDAY FOR 14 DAYS MOUTH
     Route: 048
     Dates: start: 20060213

REACTIONS (2)
  - ABDOMINAL PAIN UPPER [None]
  - VOMITING [None]
